FAERS Safety Report 5445711-4 (Version None)
Quarter: 2007Q3

REPORT INFORMATION
  Report Type: 
  Country: None (occurrence: None)
  Receive Date: 20070904
  Receipt Date: 20070820
  Transmission Date: 20080115
  Serious: Yes (Other)
  Sender: FDA-Public Use
  Company Number: SPV1-2007-03916

PATIENT
  Sex: 0

DRUGS (1)
  1. VYVANSE [Suspect]
     Indication: ATTENTION DEFICIT/HYPERACTIVITY DISORDER
     Dosage: 30 MG, ONE DOSE, ORAL
     Route: 048
     Dates: start: 20070813, end: 20070813

REACTIONS (3)
  - AGGRESSION [None]
  - SELF INJURIOUS BEHAVIOUR [None]
  - TRISMUS [None]
